FAERS Safety Report 26177224 (Version 1)
Quarter: 2025Q4

REPORT INFORMATION
  Report Type: Spontaneous
  Country: US (occurrence: US)
  Receive Date: 20251219
  Receipt Date: 20251219
  Transmission Date: 20260118
  Serious: Yes (Life-Threatening, Other)
  Sender: TAKEDA
  Company Number: US-TAKEDA-2025TUS114706

PATIENT
  Age: 83 Year
  Sex: Male

DRUGS (2)
  1. COLCHICINE [Interacting]
     Active Substance: COLCHICINE
     Indication: Pericardial effusion
     Dosage: UNK
  2. METFORMIN [Interacting]
     Active Substance: METFORMIN HYDROCHLORIDE
     Indication: Diabetes mellitus
     Dosage: UNK

REACTIONS (5)
  - Multiple organ dysfunction syndrome [Unknown]
  - Drug interaction [Unknown]
  - Toxicity to various agents [Unknown]
  - Hypotension [Unknown]
  - Mental status changes [Unknown]
